FAERS Safety Report 26026776 (Version 1)
Quarter: 2025Q4

REPORT INFORMATION
  Report Type: Spontaneous
  Country: US (occurrence: US)
  Receive Date: 20251111
  Receipt Date: 20251111
  Transmission Date: 20260117
  Serious: No
  Sender: SANOFI AVENTIS
  Company Number: US-SA-2025SA332248

PATIENT
  Age: 76 Year
  Sex: Female
  Weight: 115 kg

DRUGS (1)
  1. DUPIXENT [Suspect]
     Active Substance: DUPILUMAB
     Dosage: 300 MG, Q3W
     Route: 065
     Dates: start: 20250319

REACTIONS (4)
  - Arthritis [Unknown]
  - Joint swelling [Unknown]
  - Peripheral swelling [Unknown]
  - Inappropriate schedule of product administration [Unknown]
